FAERS Safety Report 17733966 (Version 1)
Quarter: 2020Q2

REPORT INFORMATION
  Report Type: Spontaneous
  Country: UM (occurrence: UM)
  Receive Date: 20200430
  Receipt Date: 20200430
  Transmission Date: 20200714
  Serious: Yes (Death, Life-Threatening)
  Sender: FDA-Public Use
  Company Number: None

PATIENT
  Age: 42 Year
  Sex: Male
  Weight: 66.6 kg

DRUGS (3)
  1. MIRCERA [Suspect]
     Active Substance: METHOXY POLYETHYLENE GLYCOL-EPOETIN BETA
     Indication: END STAGE RENAL DISEASE
     Dosage: ?          OTHER FREQUENCY:EVERY 2 WEEKS;?
     Route: 042
     Dates: start: 20191226, end: 20200205
  2. VENOFER [Suspect]
     Active Substance: IRON SUCROSE
     Indication: IRON DEFICIENCY ANAEMIA
     Route: 042
     Dates: start: 20191204, end: 20200205
  3. MIRCERA [Suspect]
     Active Substance: METHOXY POLYETHYLENE GLYCOL-EPOETIN BETA
     Indication: ANAEMIA OF CHRONIC DISEASE
     Dosage: ?          OTHER FREQUENCY:EVERY 2 WEEKS;?
     Route: 042
     Dates: start: 20191226, end: 20200205

REACTIONS (3)
  - Seizure like phenomena [None]
  - Haemodialysis [None]
  - Unresponsive to stimuli [None]

NARRATIVE: CASE EVENT DATE: 20200205
